FAERS Safety Report 21599809 (Version 2)
Quarter: 2022Q4

REPORT INFORMATION
  Report Type: Spontaneous
  Country: US (occurrence: US)
  Receive Date: 20221115
  Receipt Date: 20221122
  Transmission Date: 20230113
  Serious: No
  Sender: FDA-Public Use
  Company Number: US-AMGEN-USASP2022194886

PATIENT
  Sex: Male

DRUGS (1)
  1. REPATHA [Suspect]
     Active Substance: EVOLOCUMAB
     Indication: Hypercholesterolaemia
     Dosage: 140 MILLIGRAM, Q2WK
     Route: 058
     Dates: start: 202210

REACTIONS (7)
  - Product storage error [Unknown]
  - Circumstance or information capable of leading to medication error [Unknown]
  - Feeling abnormal [Unknown]
  - Dizziness [Unknown]
  - Confusional state [Unknown]
  - Vertigo [Unknown]
  - Influenza like illness [Unknown]
